FAERS Safety Report 10602172 (Version 1)
Quarter: 2014Q4

REPORT INFORMATION
  Report Type: Spontaneous
  Country: AU (occurrence: None)
  Receive Date: 20141120
  Receipt Date: 20141120
  Transmission Date: 20150529
  Serious: Yes (Other)
  Sender: FDA-Public Use
  Company Number: AU-017709

PATIENT
  Age: 88 Year
  Sex: Male

DRUGS (5)
  1. ACIMAX [Concomitant]
     Active Substance: OMEPRAZOLE
  2. ENDONE [Concomitant]
     Active Substance: OXYCODONE HYDROCHLORIDE
  3. FIRMAGON [Suspect]
     Active Substance: DEGARELIX ACETATE
     Indication: PROSTATE CANCER
     Route: 058
     Dates: start: 20141023
  4. OTHER DERMATOLOGICAL PREPARATIONS [Concomitant]
  5. OPTHAMOLOGICALS [Concomitant]

REACTIONS (3)
  - Faecal incontinence [None]
  - Fall [None]
  - Vomiting [None]

NARRATIVE: CASE EVENT DATE: 2014
